FAERS Safety Report 7289530-5 (Version None)
Quarter: 2011Q1

REPORT INFORMATION
  Report Type: 
  Country: None (occurrence: None)
  Receive Date: 20110213
  Receipt Date: 20110204
  Transmission Date: 20110831
  Serious: Yes (Disabling)
  Sender: FDA-Public Use
  Company Number: US-US-EMD SERONO, INC.-7040658

PATIENT
  Sex: Female
  Weight: 91 kg

DRUGS (2)
  1. REBIF [Suspect]
     Route: 058
     Dates: start: 20110101
  2. REBIF [Suspect]
     Indication: MULTIPLE SCLEROSIS
     Route: 058
     Dates: start: 20040507

REACTIONS (8)
  - ADVERSE DRUG REACTION [None]
  - INFECTION [None]
  - MUSCLE SPASMS [None]
  - DISORIENTATION [None]
  - SINUS OPERATION [None]
  - WEIGHT DECREASED [None]
  - SWELLING FACE [None]
  - BLINDNESS UNILATERAL [None]
